FAERS Safety Report 21936339 (Version 1)
Quarter: 2023Q1

REPORT INFORMATION
  Report Type: Spontaneous
  Country: US (occurrence: None)
  Receive Date: 20230131
  Receipt Date: 20230131
  Transmission Date: 20230417
  Serious: Yes (Death)
  Sender: FDA-Public Use
  Company Number: None

PATIENT
  Age: 80 Year
  Sex: Male

DRUGS (2)
  1. VELTASSA [Suspect]
     Active Substance: PATIROMER
     Indication: Hyperkalaemia
     Dates: start: 20220809, end: 20230113
  2. LINZESS [Concomitant]
     Active Substance: LINACLOTIDE

REACTIONS (2)
  - Chronic obstructive pulmonary disease [None]
  - Pleural effusion [None]

NARRATIVE: CASE EVENT DATE: 20230113
